FAERS Safety Report 7416124-0 (Version None)
Quarter: 2011Q2

REPORT INFORMATION
  Report Type: 
  Country: None (occurrence: None)
  Receive Date: 20110414
  Receipt Date: 20110405
  Transmission Date: 20111010
  Serious: Yes (Other)
  Sender: FDA-Public Use
  Company Number: US-SHIONOGI USA, INC-2011000043

PATIENT

DRUGS (8)
  1. METFORMIN HCL [Concomitant]
     Indication: DIABETES MELLITUS
  2. NISOLDIPINE ER [Suspect]
     Indication: HYPERTENSION
     Dosage: 17 MG, QD
     Dates: start: 20100101
  3. SYNTHROID [Concomitant]
     Indication: HYPOTHYROIDISM
  4. JANUVIA [Concomitant]
  5. ALLEGRA [Concomitant]
  6. DIOVAN [Concomitant]
     Indication: HYPERTENSION
  7. HYDROCORTISONE [Concomitant]
  8. ACE INHIBITORS [Concomitant]

REACTIONS (3)
  - DYSPNOEA [None]
  - LIP SWELLING [None]
  - URTICARIA [None]
